FAERS Safety Report 8922530 (Version 1)
Quarter: 2012Q4

REPORT INFORMATION
  Report Type: Report from Study
  Country: JP (occurrence: JP)
  Receive Date: 20121123
  Receipt Date: 20121123
  Transmission Date: 20130627
  Serious: Yes (Other)
  Sender: FDA-Public Use
  Company Number: PHHY2009JP20168

PATIENT
  Age: 67 Year
  Sex: Male

DRUGS (6)
  1. AMN107 [Suspect]
     Indication: CHRONIC MYELOID LEUKAEMIA
     Dosage: 800 mg/day
     Route: 048
     Dates: start: 20090512
  2. STEROIDS NOS [Concomitant]
  3. ANTIALLERGIC AGENTS, EXCL CORTICOSTEROIDS [Concomitant]
  4. TEPRENONE [Concomitant]
     Dosage: 150 mg, UNK
     Route: 048
     Dates: start: 20090512
  5. FAMOTIDINE [Concomitant]
     Dosage: 20 mg, UNK
     Route: 048
     Dates: start: 20090512
  6. PREDONINE [Concomitant]
     Dosage: 25 mg, UNK
     Route: 048
     Dates: start: 20090512

REACTIONS (3)
  - Breast cancer [Unknown]
  - Eosinophil count increased [Not Recovered/Not Resolved]
  - Rash generalised [Recovering/Resolving]
